FAERS Safety Report 10262564 (Version 1)
Quarter: 2014Q2

REPORT INFORMATION
  Report Type: Spontaneous
  Country: US (occurrence: US)
  Receive Date: 20140626
  Receipt Date: 20140626
  Transmission Date: 20141212
  Serious: Yes (Hospitalization, Other)
  Sender: FDA-Public Use
  Company Number: US-BAXTER-2014BAX033406

PATIENT
  Age: 60 Year
  Sex: Male

DRUGS (2)
  1. DIANEAL LOW CALCIUM [Suspect]
     Indication: PERITONEAL DIALYSIS
     Route: 033
     Dates: start: 200701
  2. DIANEAL LOW CALCIUM [Suspect]
     Indication: PERITONEAL DIALYSIS
     Route: 033
     Dates: start: 200701

REACTIONS (7)
  - White blood cell count increased [Unknown]
  - Cardiac arrest [Recovered/Resolved]
  - Respiratory failure [Unknown]
  - Hypoxia [Recovering/Resolving]
  - Back pain [Not Recovered/Not Resolved]
  - Skin ulcer [Unknown]
  - Aggression [Not Recovered/Not Resolved]
